FAERS Safety Report 4977266-2 (Version None)
Quarter: 2006Q2

REPORT INFORMATION
  Report Type: 
  Country: None (occurrence: None)
  Receive Date: 20060419
  Receipt Date: 20051004
  Transmission Date: 20061013
  Serious: Yes (Hospitalization)
  Sender: FDA-Public Use
  Company Number: US-MERCK-0510USA03501

PATIENT
  Age: 78 Year
  Sex: Female
  Weight: 77 kg

DRUGS (1)
  1. VIOXX [Suspect]
     Route: 048
     Dates: start: 20000101, end: 20010101

REACTIONS (6)
  - CARDIOVASCULAR DISORDER [None]
  - CEREBROVASCULAR ACCIDENT [None]
  - CONSTIPATION [None]
  - ERYTHEMA [None]
  - PRURITUS [None]
  - THROMBOSIS [None]
